FAERS Safety Report 8423265-8 (Version None)
Quarter: 2012Q2

REPORT INFORMATION
  Report Type: 
  Country: None (occurrence: None)
  Receive Date: 20120323
  Receipt Date: 20110216
  Transmission Date: 20120825
  Serious: Yes (Other)
  Sender: FDA-Public Use
  Company Number: 163-21880-11022307

PATIENT
  Age: 63 Year
  Sex: Female

DRUGS (4)
  1. NEURONTIN [Concomitant]
  2. REVLIMID [Suspect]
     Indication: MULTIPLE MYELOMA
     Dosage: 10 MG, DAILY FOR 21 DAYS, PO
     Route: 048
     Dates: start: 20110204
  3. VELCADE [Concomitant]
  4. ASPIRIN [Concomitant]

REACTIONS (1)
  - PLATELET COUNT DECREASED [None]
